FAERS Safety Report 8492013-8 (Version None)
Quarter: 2012Q3

REPORT INFORMATION
  Report Type: 
  Country: None (occurrence: None)
  Receive Date: 20120706
  Receipt Date: 20120629
  Transmission Date: 20120928
  Serious: Yes (Other)
  Sender: FDA-Public Use
  Company Number: GB-PFIZER INC-2012156638

PATIENT
  Age: 60 Year
  Sex: Female

DRUGS (1)
  1. VARENICLINE TARTRATE [Suspect]
     Dosage: 1 MG, UNK
     Route: 048
     Dates: start: 20120501, end: 20120604

REACTIONS (4)
  - JOINT SWELLING [None]
  - ORAL PAIN [None]
  - LICHEN PLANUS [None]
  - NAIL DISORDER [None]
